FAERS Safety Report 21711491 (Version 1)
Quarter: 2022Q4

REPORT INFORMATION
  Report Type: Spontaneous
  Country: US (occurrence: None)
  Receive Date: 20221212
  Receipt Date: 20221212
  Transmission Date: 20230113
  Serious: No
  Sender: FDA-Public Use
  Company Number: 2022A340992

PATIENT
  Age: 62 Year
  Sex: Female
  Weight: 97.1 kg

DRUGS (21)
  1. LYNPARZA [Suspect]
     Active Substance: OLAPARIB
     Indication: Product used for unknown indication
     Dosage: UNKNOWN UNKNOWN
     Route: 048
     Dates: start: 20220701
  2. AVASTIN [Suspect]
     Active Substance: BEVACIZUMAB
     Route: 065
     Dates: start: 20181231, end: 20190311
  3. LONSURF [Suspect]
     Active Substance: TIPIRACIL HYDROCHLORIDE\TRIFLURIDINE
     Indication: Colon cancer
     Route: 048
     Dates: start: 20220411, end: 20220520
  4. CHOLESTYRAMINE [Concomitant]
     Active Substance: CHOLESTYRAMINE
  5. MINOCYCLINE [Concomitant]
     Active Substance: MINOCYCLINE HYDROCHLORIDE
  6. ORAMAGIORX [Concomitant]
  7. NYSTATIN [Concomitant]
     Active Substance: NYSTATIN
  8. DOXYCYCLINE HYOLATE [Concomitant]
  9. FLUCONAZOLE [Concomitant]
     Active Substance: FLUCONAZOLE
  10. ACETAMINOPHEN\HYDROCODONE BITARTRATE [Concomitant]
     Active Substance: ACETAMINOPHEN\HYDROCODONE BITARTRATE
  11. CYCLOBENZAPRINE [Concomitant]
     Active Substance: CYCLOBENZAPRINE
  12. MACROBID [Concomitant]
     Active Substance: NITROFURANTOIN\NITROFURANTOIN MONOHYDRATE
  13. IBUPROFEN [Concomitant]
     Active Substance: IBUPROFEN
  14. ZYRTEC [Concomitant]
     Active Substance: CETIRIZINE HYDROCHLORIDE
     Dosage: 10.0MG UNKNOWN
     Route: 048
  15. BENZONATATE [Concomitant]
     Active Substance: BENZONATATE
     Dosage: 100.0MG UNKNOWN
     Route: 048
  16. OXALIPLATIN [Concomitant]
     Active Substance: OXALIPLATIN
  17. NEXIUM [Concomitant]
     Active Substance: ESOMEPRAZOLE MAGNESIUM
     Dosage: 20.0MG UNKNOWN
     Route: 048
  18. VITAMIN B1 [Concomitant]
     Active Substance: THIAMINE HYDROCHLORIDE
  19. PROBIOTIC FORMULA [Concomitant]
  20. CLOBETASOL PROPIONATE [Concomitant]
     Active Substance: CLOBETASOL PROPIONATE
  21. XARELTO [Concomitant]
     Active Substance: RIVAROXABAN
     Dosage: 20.0MG UNKNOWN
     Route: 048

REACTIONS (2)
  - Pruritus [Unknown]
  - Drug ineffective [Unknown]
